FAERS Safety Report 7860639-8 (Version None)
Quarter: 2011Q4

REPORT INFORMATION
  Report Type: 
  Country: None (occurrence: None)
  Receive Date: 20111027
  Receipt Date: 20111017
  Transmission Date: 20120403
  Serious: Yes (Hospitalization)
  Sender: FDA-Public Use
  Company Number: US-BAYER-2011-015481

PATIENT
  Age: 34 Year
  Sex: Female
  Weight: 61.224 kg

DRUGS (9)
  1. IBUPROFEN (ADVIL) [Concomitant]
     Indication: HEADACHE
     Dosage: 200 MG, BID
     Dates: start: 19890101
  2. CLONAZEPAM [Concomitant]
     Dosage: 2 MG, ONCE
     Route: 048
     Dates: start: 20070701
  3. IBUPROFEN (ADVIL) [Concomitant]
     Indication: PAIN
  4. LEXAPRO [Concomitant]
     Indication: ANXIETY
  5. MULTI-VITAMINS [Concomitant]
     Dosage: UNK
     Route: 048
     Dates: start: 20070701
  6. YAZ [Suspect]
  7. LEXAPRO [Concomitant]
     Indication: DEPRESSION
     Dosage: 10 MG, QD
     Route: 048
     Dates: start: 19990101
  8. ANTIBIOTICS [Concomitant]
     Dosage: UNK
     Dates: start: 20000101
  9. YAZ [Suspect]
     Indication: PREMENSTRUAL SYNDROME
     Dosage: UNK
     Dates: start: 20070601, end: 20071001

REACTIONS (7)
  - PAIN [None]
  - DYSPNOEA [None]
  - INJURY [None]
  - CHEST PAIN [None]
  - DISABILITY [None]
  - PULMONARY EMBOLISM [None]
  - ANXIETY [None]
